FAERS Safety Report 5332529-6 (Version None)
Quarter: 2007Q2

REPORT INFORMATION
  Report Type: 
  Country: None (occurrence: None)
  Receive Date: 20070523
  Receipt Date: 20070514
  Transmission Date: 20071010
  Serious: Yes (Hospitalization)
  Sender: FDA-Public Use
  Company Number: PHHO2007MY08208

PATIENT
  Age: 51 Year
  Sex: Male

DRUGS (5)
  1. TELBIVUDINE VS LAMIVUDINE [Suspect]
     Indication: HEPATITIS B
     Dosage: DOUBLE BLIND
     Route: 048
     Dates: start: 20060111
  2. LACTULOSE [Concomitant]
     Indication: LAXATIVE SUPPORTIVE CARE
     Dates: start: 20050912
  3. LANSOPRAZOLE [Concomitant]
     Dates: start: 20060210
  4. BETAMETHASONE [Concomitant]
     Indication: PRURITUS
     Dates: start: 20061017
  5. CHLORPHENIRAMINE MALEATE [Concomitant]
     Indication: PRURITUS
     Dates: start: 20061212

REACTIONS (3)
  - ASCITES [None]
  - PENILE SWELLING [None]
  - WEIGHT INCREASED [None]
